FAERS Safety Report 5250249-3 (Version None)
Quarter: 2007Q1

REPORT INFORMATION
  Report Type: 
  Country: None (occurrence: None)
  Receive Date: 20070228
  Receipt Date: 20060307
  Transmission Date: 20070707
  Serious: No
  Sender: FDA-Public Use
  Company Number: US-GLAXOSMITHKLINE-A0596524A

PATIENT
  Age: 34 Year
  Sex: Male

DRUGS (9)
  1. LAMICTAL [Suspect]
     Indication: BIPOLAR DISORDER
     Dosage: 100MG THREE TIMES PER DAY
     Route: 048
  2. DEPAKOTE [Concomitant]
  3. EFFEXOR [Concomitant]
  4. PROVIGIL [Concomitant]
  5. ATIVAN [Concomitant]
  6. GEODON [Concomitant]
  7. CHONDROITIN [Concomitant]
  8. ASPIRIN [Concomitant]
  9. GLUCOSAMINE [Concomitant]

REACTIONS (5)
  - MOUTH ULCERATION [None]
  - NECK PAIN [None]
  - PHARYNGEAL OEDEMA [None]
  - RASH [None]
  - TONSILLAR DISORDER [None]
